FAERS Safety Report 5327294-2 (Version None)
Quarter: 2007Q2

REPORT INFORMATION
  Report Type: 
  Country: None (occurrence: None)
  Receive Date: 20070511
  Receipt Date: 20070501
  Transmission Date: 20071010
  Serious: Yes (Hospitalization)
  Sender: FDA-Public Use
  Company Number: 2007SP006851

PATIENT
  Age: 55 Year
  Sex: Female
  Weight: 133 kg

DRUGS (2)
  1. PEG-INTRON [Suspect]
     Indication: HEPATITIS C
     Dosage: 80 MCG' QW; SC
     Route: 058
     Dates: start: 20070409, end: 20070411
  2. REBETOL [Suspect]
     Indication: HEPATITIS C
     Dosage: 800 MG; QD; PO
     Route: 048
     Dates: start: 20070409, end: 20070411

REACTIONS (2)
  - MALLORY-WEISS SYNDROME [None]
  - PANCREATITIS [None]
